FAERS Safety Report 8139184-0 (Version None)
Quarter: 2012Q1

REPORT INFORMATION
  Report Type: 
  Country: None (occurrence: None)
  Receive Date: 20120215
  Receipt Date: 20120210
  Transmission Date: 20120608
  Serious: Yes (Other)
  Sender: FDA-Public Use
  Company Number: GB-PFIZER INC-2012038298

PATIENT
  Age: 58 Year
  Sex: Female

DRUGS (2)
  1. BENDROFLUAZIDE [Concomitant]
     Dosage: 2.5 MG
  2. AMLODIPINE BESYLATE [Suspect]

REACTIONS (1)
  - LINEAR IGA DISEASE [None]
